FAERS Safety Report 6008596-3 (Version None)
Quarter: 2008Q4

REPORT INFORMATION
  Report Type: 
  Country: None (occurrence: None)
  Receive Date: 20081217
  Receipt Date: 20081211
  Transmission Date: 20090506
  Serious: Yes (Death)
  Sender: FDA-Public Use
  Company Number: US-GILEAD-2008-0019475

PATIENT
  Sex: Female
  Weight: 61.29 kg

DRUGS (11)
  1. LETAIRIS [Suspect]
     Indication: COR PULMONALE CHRONIC
     Route: 048
     Dates: start: 20080202
  2. REVATIO [Concomitant]
  3. COUMADIN [Concomitant]
  4. TORSEMIDE [Concomitant]
  5. METOLAZONE [Concomitant]
  6. EXJADE [Concomitant]
  7. TORADOL [Concomitant]
  8. LORTAB [Concomitant]
  9. OXYCONTIN [Concomitant]
  10. FOLIC ACID [Concomitant]
  11. MULTI-VITAMIN [Concomitant]

REACTIONS (1)
  - SICKLE CELL ANAEMIA [None]
